FAERS Safety Report 4277407-9 (Version None)
Quarter: 2004Q1

REPORT INFORMATION
  Report Type: 
  Country: None (occurrence: None)
  Receive Date: 20040122
  Receipt Date: 20040114
  Transmission Date: 20041129
  Serious: Yes (Hospitalization)
  Sender: FDA-Public Use
  Company Number: US-GLAXOSMITHKLINE-A0493591A

PATIENT
  Age: 61 Year
  Sex: Male

DRUGS (3)
  1. WELLBUTRIN [Suspect]
     Indication: DEPRESSION
     Dosage: 300MG PER DAY
     Route: 048
     Dates: start: 20031217, end: 20040108
  2. TRAZODONE HCL [Concomitant]
  3. PLAVIX [Concomitant]

REACTIONS (4)
  - APHASIA [None]
  - CONVULSION [None]
  - PARAESTHESIA [None]
  - PARALYSIS [None]
